FAERS Safety Report 6821049-5 (Version None)
Quarter: 2010Q3

REPORT INFORMATION
  Report Type: 
  Country: None (occurrence: None)
  Receive Date: 20100707
  Receipt Date: 20071024
  Transmission Date: 20110219
  Serious: No
  Sender: FDA-Public Use
  Company Number: US-PFIZER INC-2007089804

PATIENT

DRUGS (1)
  1. ZOLOFT [Suspect]
     Indication: ANXIETY

REACTIONS (1)
  - WRONG TECHNIQUE IN DRUG USAGE PROCESS [None]
